FAERS Safety Report 23220694 (Version 6)
Quarter: 2024Q3

REPORT INFORMATION
  Report Type: Report from Study
  Country: NL (occurrence: NL)
  Receive Date: 20231123
  Receipt Date: 20240717
  Transmission Date: 20241016
  Serious: Yes (Hospitalization)
  Sender: ABBVIE
  Company Number: NL-ABBVIE-5506662

PATIENT
  Age: 76 Year
  Sex: Male

DRUGS (11)
  1. CARBIDOPA\LEVODOPA [Suspect]
     Active Substance: CARBIDOPA\LEVODOPA
     Indication: Parkinson^s disease
     Dosage: MD: 6.0ML, CD: 2.8ML/H, ED: 2.0ML?REMAINS AT 16 HOURS
     Route: 050
     Dates: start: 20230704, end: 20230705
  2. CARBIDOPA\LEVODOPA [Suspect]
     Active Substance: CARBIDOPA\LEVODOPA
     Dosage: MD: 6.0ML, CD: 2.8ML/H, ED: 2.00ML
     Route: 050
     Dates: start: 20231207, end: 20231213
  3. CARBIDOPA\LEVODOPA [Suspect]
     Active Substance: CARBIDOPA\LEVODOPA
     Dosage: REMAINS AT 16 HOURS
     Route: 050
     Dates: start: 20200629, end: 2023
  4. CARBIDOPA\LEVODOPA [Suspect]
     Active Substance: CARBIDOPA\LEVODOPA
     Dosage: MD: 6.0ML, CD: 2.8ML/H, ED: 2.0ML?REMAINS AT 16 HOURS
     Route: 050
     Dates: start: 20230705, end: 20231207
  5. CARBIDOPA\LEVODOPA [Suspect]
     Active Substance: CARBIDOPA\LEVODOPA
     Dosage: MD: 6.0ML, CD: 2.8ML/H, ED: 2.0ML?LAST ADMIN DATE-DEC 2023?REMAINS AT 16 HOURS
     Route: 050
     Dates: start: 202312
  6. CARBIDOPA\LEVODOPA [Suspect]
     Active Substance: CARBIDOPA\LEVODOPA
     Dosage: MD: 6.0ML, CD: 2.8ML/H, ED: 2.00ML
     Route: 050
     Dates: start: 202312, end: 20240109
  7. CARBIDOPA\LEVODOPA [Suspect]
     Active Substance: CARBIDOPA\LEVODOPA
     Route: 050
     Dates: start: 202401
  8. LEVODOPA [Concomitant]
     Active Substance: LEVODOPA
     Indication: Product used for unknown indication
     Dosage: TIME INTERVAL: 0.33333333 DAYS: FORM STRENGTH: 250 MILLIGRAM
     Route: 048
  9. CLOZAPINE [Concomitant]
     Active Substance: CLOZAPINE
     Indication: Product used for unknown indication
     Dosage: IN THE EVENING
  10. QUETIAPINE [Concomitant]
     Active Substance: QUETIAPINE
     Indication: Product used for unknown indication
     Dosage: LOWERING 25MG?STOP DATE: AFTER A WEEK
  11. QUETIAPINE [Concomitant]
     Active Substance: QUETIAPINE
     Indication: Product used for unknown indication

REACTIONS (21)
  - Clavicle fracture [Unknown]
  - Device breakage [Unknown]
  - Confusional state [Not Recovered/Not Resolved]
  - Confusional state [Not Recovered/Not Resolved]
  - Hypotension [Not Recovered/Not Resolved]
  - Off label use [Not Recovered/Not Resolved]
  - Freezing phenomenon [Not Recovered/Not Resolved]
  - Cerebral haemorrhage [Recovered/Resolved]
  - Road traffic accident [Unknown]
  - Muscle rigidity [Not Recovered/Not Resolved]
  - Delusion [Not Recovered/Not Resolved]
  - Dizziness [Not Recovered/Not Resolved]
  - Rehabilitation therapy [Not Recovered/Not Resolved]
  - Restlessness [Not Recovered/Not Resolved]
  - Unevaluable event [Not Recovered/Not Resolved]
  - Salivary hypersecretion [Not Recovered/Not Resolved]
  - Device connection issue [Recovered/Resolved]
  - Device dislocation [Recovered/Resolved]
  - On and off phenomenon [Not Recovered/Not Resolved]
  - Device loosening [Unknown]
  - Device dislocation [Not Recovered/Not Resolved]

NARRATIVE: CASE EVENT DATE: 20231101
